FAERS Safety Report 5066940-8 (Version None)
Quarter: 2006Q3

REPORT INFORMATION
  Report Type: 
  Country: None (occurrence: None)
  Receive Date: 20060726
  Receipt Date: 20060724
  Transmission Date: 20061208
  Serious: Yes (Hospitalization)
  Sender: FDA-Public Use
  Company Number: 200611109BCC

PATIENT
  Age: 34 Year
  Sex: Female

DRUGS (1)
  1. CLOTRIMAZOLE [Suspect]
     Indication: DRUG USE FOR UNKNOWN INDICATION
     Dosage: ORAL
     Route: 048

REACTIONS (6)
  - ABDOMINAL PAIN UPPER [None]
  - ACCIDENTAL EXPOSURE [None]
  - ANXIETY [None]
  - DYSGEUSIA [None]
  - NAUSEA [None]
  - SALIVARY HYPERSECRETION [None]
